FAERS Safety Report 13508951 (Version 3)
Quarter: 2017Q3

REPORT INFORMATION
  Report Type: Report from Study
  Country: None (occurrence: BE)
  Receive Date: 20170503
  Receipt Date: 20170902
  Transmission Date: 20171127
  Serious: Yes (Other)
  Sender: FDA-Public Use
  Company Number: BE-ABBVIE-17K-013-1959712-00

PATIENT
  Age: 59 Year
  Sex: Male

DRUGS (1)
  1. HUMIRA [Suspect]
     Active Substance: ADALIMUMAB
     Indication: COLITIS ULCERATIVE
     Route: 058

REACTIONS (8)
  - Frequent bowel movements [Unknown]
  - Weight decreased [Unknown]
  - Gastrointestinal bacterial infection [Recovered/Resolved]
  - Diarrhoea [Unknown]
  - Mucous stools [Recovered/Resolved]
  - Gastrointestinal viral infection [Unknown]
  - Osteoporosis [Unknown]
  - Haematochezia [Recovered/Resolved]

NARRATIVE: CASE EVENT DATE: 20170413
